FAERS Safety Report 24539792 (Version 1)
Quarter: 2024Q4

REPORT INFORMATION
  Report Type: Spontaneous
  Country: US (occurrence: None)
  Receive Date: 20241022
  Receipt Date: 20241022
  Transmission Date: 20250115
  Serious: Yes (Hospitalization)
  Sender: Public
  Company Number: None

PATIENT
  Age: 55 Year
  Sex: Female

DRUGS (1)
  1. EMPAGLIFLOZIN [Suspect]
     Active Substance: EMPAGLIFLOZIN
     Indication: Diabetes mellitus
     Dosage: FREQUENCY : DAILY;?
     Route: 048
     Dates: end: 20240405

REACTIONS (4)
  - Rhinovirus infection [None]
  - Euglycaemic diabetic ketoacidosis [None]
  - Hypophagia [None]
  - Decreased appetite [None]

NARRATIVE: CASE EVENT DATE: 20240411
